FAERS Safety Report 6248070-2 (Version None)
Quarter: 2009Q2

REPORT INFORMATION
  Report Type: 
  Country: None (occurrence: None)
  Receive Date: 20090628
  Receipt Date: 20090616
  Transmission Date: 20091009
  Serious: Yes (Hospitalization, Other)
  Sender: FDA-Public Use
  Company Number: US-ELI_LILLY_AND_COMPANY-US200906003761

PATIENT
  Sex: Female
  Weight: 68.027 kg

DRUGS (24)
  1. ZYPREXA [Suspect]
     Indication: MIGRAINE
     Dosage: 5 MG, DAILY (1/D)
  2. ZYPREXA [Suspect]
     Dosage: 20 MG, DAILY (1/D)
  3. MINOCYCLINE HCL [Concomitant]
     Indication: SKIN DISORDER
     Dosage: 50 UG, DAILY (1/D)
  4. LORATADINE [Concomitant]
     Indication: MULTIPLE ALLERGIES
     Dosage: 10 MG, DAILY (1/D)
  5. IMITREX [Concomitant]
     Indication: MIGRAINE
     Dosage: 50 MG, AS NEEDED
  6. DICYCLOMINE [Concomitant]
     Indication: IRRITABLE BOWEL SYNDROME
     Dosage: 20 MG, 4/D
  7. ALBUTEROL [Concomitant]
     Indication: ASTHMA
     Dosage: UNK, AS NEEDED
  8. AMITRIPTYLINE HCL [Concomitant]
     Indication: MIGRAINE
     Dosage: 50 MG, DAILY (1/D)
  9. PROTONIX [Concomitant]
     Indication: ABDOMINAL PAIN UPPER
     Dosage: 40 MG, DAILY (1/D)
  10. POTASSIUM CHLORIDE [Concomitant]
     Indication: BLOOD POTASSIUM
     Dosage: 10 MEQ, DAILY (1/D)
  11. ACETAMINOPHEN AND HYDROCODONE BITARTRATE [Concomitant]
     Indication: MIGRAINE
     Dosage: 1 D/F, 4/D
  12. PROMETHAZINE [Concomitant]
     Dosage: 25 MG, 6 TIMES PER DAY
  13. ESTRADIOL [Concomitant]
     Indication: HORMONE REPLACEMENT THERAPY
     Dosage: 1 MG, 2/D
  14. PROPRANOLOL HYDROCHLORIDE [Concomitant]
     Indication: TREMOR
     Dosage: 20 MG, 2/D
  15. PHENERGAN [Concomitant]
     Indication: NAUSEA
     Dosage: 25 MG, AS NEEDED
  16. METHOCARBAMOL [Concomitant]
     Indication: MUSCLE RELAXANT THERAPY
     Dosage: 500 MG, 2/D
  17. IMITREX [Concomitant]
     Dosage: 100 MG, AS NEEDED
  18. TRILEPTAL [Concomitant]
     Indication: BIPOLAR DISORDER
     Dosage: 150 MG, 7 PER DAY
  19. TOPAMAX [Concomitant]
     Indication: CONVULSION
     Dosage: 100 MG, 2/D
  20. METOCLOPRAMIDE [Concomitant]
     Indication: NAUSEA
     Dosage: 10 MG, 6 TIMES PER DAY
  21. LEXAPRO [Concomitant]
     Indication: BIPOLAR DISORDER
     Dosage: 10 MG, DAILY (1/D)
  22. LORAZEPAM [Concomitant]
     Indication: ANXIETY
     Dosage: 1 MG, 2/D
  23. AMBIEN [Concomitant]
     Indication: INSOMNIA
     Dosage: 10 MG, DAILY (1/D)
  24. CLONAZEPAM [Concomitant]
     Indication: CONVULSION
     Dosage: 1 MG, 4/D

REACTIONS (3)
  - BRAIN INJURY [None]
  - COMA [None]
  - OFF LABEL USE [None]
